FAERS Safety Report 7704471-4 (Version None)
Quarter: 2011Q3

REPORT INFORMATION
  Report Type: 
  Country: None (occurrence: None)
  Receive Date: 20110823
  Receipt Date: 20110816
  Transmission Date: 20111222
  Serious: Yes (Hospitalization, Disabling, Other)
  Sender: FDA-Public Use
  Company Number: US-ABBOTT-11P-163-0845851-00

PATIENT
  Sex: Male
  Weight: 63.56 kg

DRUGS (15)
  1. HUMIRA [Suspect]
     Indication: HIDRADENITIS
     Route: 058
     Dates: start: 20110406
  2. COLACE [Concomitant]
     Indication: CONSTIPATION
  3. PERCOCET [Concomitant]
     Indication: BACK PAIN
  4. LOPRESSOR [Concomitant]
     Indication: HYPERTENSION
  5. INSULIN [Concomitant]
     Indication: DIABETES MELLITUS
  6. GLUCOTROL [Concomitant]
     Indication: DIABETES MELLITUS
  7. COZAAR [Concomitant]
     Indication: PRODUCT USED FOR UNKNOWN INDICATION
  8. HUMIRA [Suspect]
     Dates: start: 20110719, end: 20110719
  9. ASPIRIN [Concomitant]
     Indication: PRODUCT USED FOR UNKNOWN INDICATION
  10. PLAVIX [Concomitant]
     Indication: PRODUCT USED FOR UNKNOWN INDICATION
  11. PERCOCET [Concomitant]
     Indication: SCROTAL PAIN
     Dosage: 5/325 (1-2 DAILY)
  12. CENTRUM [Concomitant]
     Indication: VITAMIN SUPPLEMENTATION
  13. NORVASC [Concomitant]
     Indication: HYPERTENSION
  14. VIBRAMYCIN [Concomitant]
     Indication: SCROTAL INFECTION
  15. XANAX [Concomitant]
     Indication: PRODUCT USED FOR UNKNOWN INDICATION

REACTIONS (23)
  - MENTAL STATUS CHANGES [None]
  - SCROTAL INFECTION [None]
  - UNRESPONSIVE TO STIMULI [None]
  - SEIZURE LIKE PHENOMENA [None]
  - NUTRITIONAL CONDITION ABNORMAL [None]
  - SKIN FISSURES [None]
  - LABILE BLOOD PRESSURE [None]
  - JOINT CONTRACTURE [None]
  - BLOOD GLUCOSE DECREASED [None]
  - CONVULSION [None]
  - AGITATION [None]
  - COMA [None]
  - FOREIGN BODY [None]
  - BEDRIDDEN [None]
  - APHASIA [None]
  - TREMOR [None]
  - HYPERHIDROSIS [None]
  - VISION BLURRED [None]
  - FEELING ABNORMAL [None]
  - ABNORMAL BEHAVIOUR [None]
  - RESPIRATORY DEPRESSION [None]
  - WOUND COMPLICATION [None]
  - BLOOD GLUCOSE INCREASED [None]
